FAERS Safety Report 6383325-2 (Version None)
Quarter: 2009Q4

REPORT INFORMATION
  Report Type: 
  Country: None (occurrence: None)
  Receive Date: 20091001
  Receipt Date: 20090921
  Transmission Date: 20100525
  Serious: Yes (Other)
  Sender: FDA-Public Use
  Company Number: US-BIOGENIDEC-2009BI030709

PATIENT
  Age: 63 Year
  Sex: Female

DRUGS (1)
  1. AVONEX [Suspect]
     Indication: MULTIPLE SCLEROSIS
     Route: 030
     Dates: start: 19980715

REACTIONS (4)
  - BONE EROSION [None]
  - LIP AND/OR ORAL CAVITY CANCER [None]
  - MULTIPLE SCLEROSIS [None]
  - TOOTH DISORDER [None]
